FAERS Safety Report 4880417-1 (Version None)
Quarter: 2006Q1

REPORT INFORMATION
  Report Type: 
  Country: None (occurrence: None)
  Receive Date: 20060113
  Receipt Date: 20060105
  Transmission Date: 20060701
  Serious: Yes (Death)
  Sender: FDA-Public Use
  Company Number: IT-ABBOTT-06P-083-0321339-00

PATIENT
  Sex: Male

DRUGS (10)
  1. KLACID [Suspect]
     Indication: BRONCHITIS ACUTE
     Route: 048
     Dates: start: 20051104, end: 20051115
  2. SIMVASTATIN [Suspect]
     Indication: MYOCARDIAL ISCHAEMIA
     Route: 048
     Dates: start: 20041001, end: 20051119
  3. AMIODARONE HCL [Suspect]
     Indication: DRUG USE FOR UNKNOWN INDICATION
     Route: 048
     Dates: start: 20041001, end: 20051119
  4. ERITROPOIETINA DE DNA RECOMBINANTE [Concomitant]
     Indication: DRUG USE FOR UNKNOWN INDICATION
  5. CALCIUM CARBONATE [Concomitant]
     Indication: DRUG USE FOR UNKNOWN INDICATION
  6. CLONIDINE [Concomitant]
     Indication: DRUG USE FOR UNKNOWN INDICATION
  7. ISOSORBIDE MONONITRATE [Concomitant]
     Indication: DRUG USE FOR UNKNOWN INDICATION
  8. MANIDIPINE [Concomitant]
     Indication: DRUG USE FOR UNKNOWN INDICATION
  9. FUROSEMIDE [Concomitant]
     Indication: DRUG USE FOR UNKNOWN INDICATION
     Dosage: 20 MG/2 ML
  10. ASPIRIN [Concomitant]
     Indication: DRUG USE FOR UNKNOWN INDICATION

REACTIONS (2)
  - RENAL FAILURE [None]
  - RHABDOMYOLYSIS [None]
